FAERS Safety Report 4655470-0 (Version None)
Quarter: 2005Q2

REPORT INFORMATION
  Report Type: 
  Country: None (occurrence: None)
  Receive Date: 20050505
  Receipt Date: 20050421
  Transmission Date: 20051028
  Serious: Yes (Hospitalization)
  Sender: FDA-Public Use
  Company Number: 2005BI008189

PATIENT
  Age: 33 Year
  Sex: Female
  Weight: 54.4316 kg

DRUGS (1)
  1. AVONEX LYOPHILIZED [Suspect]
     Indication: MULTIPLE SCLEROSIS
     Dosage: 30 MCG;QW; IM
     Route: 030
     Dates: start: 20030101

REACTIONS (3)
  - DRUG EXPOSURE DURING PREGNANCY [None]
  - INTRACRANIAL ANEURYSM [None]
  - UNINTENDED PREGNANCY [None]
